FAERS Safety Report 12810296 (Version 2)
Quarter: 2016Q4

REPORT INFORMATION
  Report Type: Spontaneous
  Country: US (occurrence: US)
  Receive Date: 20161005
  Receipt Date: 20161215
  Transmission Date: 20170207
  Serious: Yes (Death, Hospitalization)
  Sender: FDA-Public Use
  Company Number: US-PFIZER INC-2016399665

PATIENT
  Age: 64 Year
  Sex: Male
  Weight: 83.91 kg

DRUGS (3)
  1. MORPHINE [Concomitant]
     Active Substance: MORPHINE
     Dosage: UNK
  2. VFEND [Suspect]
     Active Substance: VORICONAZOLE
     Indication: FUNGAL INFECTION
     Dosage: 200 MG, 2X/DAY
     Route: 048
     Dates: start: 20160811, end: 20160914
  3. VFEND [Suspect]
     Active Substance: VORICONAZOLE
     Indication: IMMUNODEFICIENCY

REACTIONS (3)
  - Fungal infection [Fatal]
  - Condition aggravated [Fatal]
  - Leukaemia [Fatal]

NARRATIVE: CASE EVENT DATE: 20160811
